FAERS Safety Report 4374116-2 (Version None)
Quarter: 2004Q2

REPORT INFORMATION
  Report Type: 
  Country: None (occurrence: None)
  Receive Date: 20040607
  Receipt Date: 20040519
  Transmission Date: 20050107
  Serious: Yes (Disabling)
  Sender: FDA-Public Use
  Company Number: US-MERCK-0405USA01452

PATIENT
  Age: 43 Year
  Sex: Female
  Weight: 91 kg

DRUGS (1)
  1. SINGULAIR [Suspect]
     Indication: ASTHMA
     Route: 048
     Dates: start: 19980101, end: 19980101

REACTIONS (5)
  - FATIGUE [None]
  - HYPERHIDROSIS [None]
  - MALAISE [None]
  - PAIN IN EXTREMITY [None]
  - PRESCRIBED OVERDOSE [None]
